FAERS Safety Report 5527358-4 (Version None)
Quarter: 2007Q4

REPORT INFORMATION
  Report Type: 
  Country: None (occurrence: None)
  Receive Date: 20071121
  Receipt Date: 20071109
  Transmission Date: 20080405
  Serious: Yes (Other)
  Sender: FDA-Public Use
  Company Number: B0496051A

PATIENT
  Sex: Female

DRUGS (2)
  1. AMERGE [Suspect]
     Dosage: 5 MG/ TWICE PER DAY / ORAL
     Route: 048
  2. VENLAFAXINE HCL [Suspect]

REACTIONS (8)
  - ARTHRALGIA [None]
  - ATAXIA [None]
  - DRUG INTERACTION [None]
  - HYPERTENSION [None]
  - INFECTIOUS MONONUCLEOSIS [None]
  - MUSCULOSKELETAL STIFFNESS [None]
  - NEUTROPENIA [None]
  - SEROTONIN SYNDROME [None]
